FAERS Safety Report 7623660-0 (Version None)
Quarter: 2011Q3

REPORT INFORMATION
  Report Type: 
  Country: None (occurrence: None)
  Receive Date: 20110720
  Receipt Date: 20110705
  Transmission Date: 20111222
  Serious: Yes (Other)
  Sender: FDA-Public Use
  Company Number: CN-WATSON-2011-10652

PATIENT
  Age: 33 Year
  Sex: Male

DRUGS (2)
  1. CYCLOSPORINE [Suspect]
     Indication: PROPHYLAXIS AGAINST TRANSPLANT REJECTION
     Route: 065
  2. PREDNISONE [Suspect]
     Indication: IMMUNOSUPPRESSION
     Route: 065

REACTIONS (4)
  - VARICELLA [None]
  - RESPIRATORY TRACT INFECTION [None]
  - KAPOSI'S SARCOMA [None]
  - DRUG INEFFECTIVE [None]
